FAERS Safety Report 8054781-9 (Version None)
Quarter: 2012Q1

REPORT INFORMATION
  Report Type: 
  Country: None (occurrence: None)
  Receive Date: 20120112
  Receipt Date: 20120104
  Transmission Date: 20120608
  Serious: Yes (Other)
  Sender: FDA-Public Use
  Company Number: 2012MA000221

PATIENT
  Age: 44 Year
  Sex: Male

DRUGS (11)
  1. CLOZAPINE [Suspect]
     Indication: BIPOLAR DISORDER
     Dosage: 225 MG; QD; PO
     Route: 048
     Dates: start: 20100514, end: 20111201
  2. OXYTETRACYCLINE [Concomitant]
  3. FEVERALL [Suspect]
     Indication: PAIN
     Dosage: 1 MG; PRN; PO
     Route: 048
     Dates: start: 20110823
  4. FEVERALL [Suspect]
     Indication: PYREXIA
     Dosage: 1 MG; PRN; PO
     Route: 048
     Dates: start: 20110823
  5. DEPAKOTE [Concomitant]
  6. BENZTROPINE MESYLATE [Concomitant]
  7. KADRIVASCOL [Concomitant]
  8. DIAZEPAM [Concomitant]
  9. LAXIDO [Concomitant]
  10. LAMOTRIGINE [Concomitant]
  11. LORAZEPAM [Concomitant]

REACTIONS (10)
  - WHITE BLOOD CELL COUNT DECREASED [None]
  - RASH [None]
  - CONSTIPATION [None]
  - PAIN [None]
  - PYREXIA [None]
  - EXTRAPYRAMIDAL DISORDER [None]
  - VASCULITIS [None]
  - AGITATION [None]
  - NEUTROPENIA [None]
  - MOOD ALTERED [None]
